FAERS Safety Report 8814020 (Version 1)
Quarter: 2012Q4

REPORT INFORMATION
  Report Type: 
  Country: IN (occurrence: IN)
  Receive Date: 20120928
  Receipt Date: 20120928
  Transmission Date: 20130627
  Serious: Yes (Hospitalization)
  Sender: FDA-Public Use
  Company Number: IN-MERCK-1209USA011569

PATIENT
  Age: 49 Year
  Sex: Female

DRUGS (1)
  1. JANUMET [Suspect]
     Dosage: UNK UNK, qd
     Route: 048

REACTIONS (3)
  - Loss of consciousness [Unknown]
  - Blood glucose decreased [Unknown]
  - Inappropriate schedule of drug administration [Unknown]
